FAERS Safety Report 7000414-X (Version None)
Quarter: 2010Q3

REPORT INFORMATION
  Report Type: 
  Country: None (occurrence: None)
  Receive Date: 20100920
  Receipt Date: 20091019
  Transmission Date: 20110219
  Serious: No
  Sender: FDA-Public Use
  Company Number: US-ASTRAZENECA-2009SE20967

PATIENT
  Age: 45 Year
  Sex: Female
  Weight: 57.6 kg

DRUGS (5)
  1. SEROQUEL [Suspect]
     Indication: BIPOLAR DISORDER
     Route: 048
     Dates: start: 20050101
  2. SEROQUEL [Suspect]
     Indication: POOR QUALITY SLEEP
     Route: 048
     Dates: start: 20050101
  3. SEROQUEL [Suspect]
     Route: 048
     Dates: start: 20060101, end: 20091001
  4. SEROQUEL [Suspect]
     Route: 048
     Dates: start: 20060101, end: 20091001
  5. TRAZODONE HCL [Suspect]
     Dates: start: 20091006

REACTIONS (7)
  - DYSGEUSIA [None]
  - FATIGUE [None]
  - INSOMNIA [None]
  - NASAL CONGESTION [None]
  - SINUS HEADACHE [None]
  - SNEEZING [None]
  - WITHDRAWAL SYNDROME [None]
